FAERS Safety Report 22114896 (Version 1)
Quarter: 2023Q1

REPORT INFORMATION
  Report Type: Spontaneous
  Country: None (occurrence: FR)
  Receive Date: 20230320
  Receipt Date: 20230320
  Transmission Date: 20230417
  Serious: Yes (Hospitalization, Other)
  Sender: FDA-Public Use
  Company Number: FR-B.Braun Medical Inc.-2139269

PATIENT
  Age: 71 Year
  Sex: Female
  Weight: 40 kg

DRUGS (5)
  1. METRONIDAZOLE [Suspect]
     Active Substance: METRONIDAZOLE
     Route: 042
     Dates: start: 20221125, end: 20221129
  2. CEFTRIAXONE [Suspect]
     Active Substance: CEFTRIAXONE
  3. TYGACIL [Suspect]
     Active Substance: TIGECYCLINE
  4. TEMOCILLIN [Suspect]
     Active Substance: TEMOCILLIN
  5. CILASTATIN SODIUM\IMIPENEM [Suspect]
     Active Substance: CILASTATIN SODIUM\IMIPENEM

REACTIONS (1)
  - Coombs negative haemolytic anaemia [Recovering/Resolving]
